FAERS Safety Report 10971942 (Version 4)
Quarter: 2021Q2

REPORT INFORMATION
  Report Type: Spontaneous
  Country: US (occurrence: US)
  Receive Date: 20150331
  Receipt Date: 20210526
  Transmission Date: 20210716
  Serious: Yes (Other)
  Sender: FDA-Public Use
  Company Number: US-JNJFOC-20140314914

PATIENT
  Age: 8 Year
  Sex: Male

DRUGS (1)
  1. RISPERDAL [Suspect]
     Active Substance: RISPERIDONE
     Indication: ATTENTION DEFICIT HYPERACTIVITY DISORDER
     Route: 048
     Dates: start: 2006, end: 2009

REACTIONS (8)
  - Off label use [Unknown]
  - Galactorrhoea [Unknown]
  - Tardive dyskinesia [Unknown]
  - Product use in unapproved indication [Unknown]
  - Abnormal weight gain [Not Recovered/Not Resolved]
  - Drug ineffective [Unknown]
  - Emotional distress [Unknown]
  - Gynaecomastia [Not Recovered/Not Resolved]
